FAERS Safety Report 8476330-3 (Version None)
Quarter: 2012Q2

REPORT INFORMATION
  Report Type: 
  Country: None (occurrence: None)
  Receive Date: 20120628
  Receipt Date: 20120620
  Transmission Date: 20120825
  Serious: Yes (Other)
  Sender: FDA-Public Use
  Company Number: US-PFIZER INC-2012149821

PATIENT
  Sex: Male
  Weight: 111 kg

DRUGS (3)
  1. PREPARATION H HEMORRHOIDAL SUPPOSITORIES [Suspect]
     Indication: CONSTIPATION
     Dosage: UNKNOWN DOSE, ONCE
     Dates: start: 20120620
  2. SOLU-MEDROL [Concomitant]
     Indication: MULTIPLE SCLEROSIS
     Dosage: UNK
     Route: 042
  3. SOLU-MEDROL [Concomitant]
     Dosage: UNK, 3X/WEEK
     Route: 042
     Dates: start: 20120101

REACTIONS (2)
  - HAEMATOCHEZIA [None]
  - APPLICATION SITE IRRITATION [None]
